FAERS Safety Report 8809242 (Version 1)
Quarter: 2012Q4

REPORT INFORMATION
  Report Type: Spontaneous
  Country: US (occurrence: None)
  Receive Date: 20120921
  Receipt Date: 20120921
  Transmission Date: 20130627
  Serious: Yes (Hospitalization)
  Sender: FDA-Public Use
  Company Number: None

PATIENT
  Age: 90 Year
  Sex: Male
  Weight: 94.5 kg

DRUGS (4)
  1. ASPIRIN [Suspect]
     Indication: CORONARY ARTERY DISEASE
     Dosage: 325 MG EVERY DAY PO
     Route: 048
     Dates: start: 20120316, end: 20120706
  2. ASPIRIN [Suspect]
     Indication: PROPHYLAXIS
     Dosage: 325 MG EVERY DAY PO
     Route: 048
     Dates: start: 20120316, end: 20120706
  3. ASPIRIN [Suspect]
     Indication: CEREBROVASCULAR ACCIDENT PROPHYLAXIS
     Dosage: 325 MG EVERY DAY PO
     Route: 048
     Dates: start: 20120316, end: 20120706
  4. NAPROXEN [Suspect]
     Indication: PAIN
     Dosage: 500 MG EVERY DAY PO
     Route: 048
     Dates: start: 20110621, end: 20120706

REACTIONS (3)
  - Anaemia [None]
  - Gastric haemorrhage [None]
  - Upper gastrointestinal haemorrhage [None]
